FAERS Safety Report 12698615 (Version 1)
Quarter: 2016Q3

REPORT INFORMATION
  Report Type: Spontaneous
  Country: US (occurrence: US)
  Receive Date: 20160830
  Receipt Date: 20160830
  Transmission Date: 20161109
  Serious: No
  Sender: FDA-Public Use
  Company Number: US-009507513-1608USA008168

PATIENT
  Sex: Male

DRUGS (1)
  1. INTRON A [Suspect]
     Active Substance: INTERFERON ALFA-2B
     Indication: MALIGNANT MELANOMA
     Dosage: STRENGTH: 50 MU (MILLION UNITS) SINGLE DOSE VIAL ; 21 MU; FREQUENCY: MONDAY, WEDNESDAY, FRIDAY (MWF)
     Route: 058
     Dates: start: 20151007

REACTIONS (2)
  - Fatigue [Unknown]
  - Musculoskeletal stiffness [Unknown]
